FAERS Safety Report 10483840 (Version 1)
Quarter: 2014Q3

REPORT INFORMATION
  Report Type: Spontaneous
  Country: US (occurrence: None)
  Receive Date: 20140929
  Receipt Date: 20140929
  Transmission Date: 20150326
  Serious: Yes (Hospitalization)
  Sender: FDA-Public Use
  Company Number: None

PATIENT
  Age: 70 Year
  Sex: Male
  Weight: 87.5 kg

DRUGS (1)
  1. GLYBURIDE. [Suspect]
     Active Substance: GLYBURIDE
     Indication: DIABETES MELLITUS
     Route: 048
     Dates: start: 20140221, end: 20140823

REACTIONS (7)
  - Gait disturbance [None]
  - Abasia [None]
  - Muscular weakness [None]
  - Sinus bradycardia [None]
  - Dysarthria [None]
  - Ataxia [None]
  - Blood glucose [None]

NARRATIVE: CASE EVENT DATE: 20140823
